FAERS Safety Report 4696239-0 (Version None)
Quarter: 2005Q2

REPORT INFORMATION
  Report Type: 
  Country: None (occurrence: None)
  Receive Date: 20050621
  Receipt Date: 20050610
  Transmission Date: 20051028
  Serious: Yes (Disabling)
  Sender: FDA-Public Use
  Company Number: PERIO-2005-0044

PATIENT
  Age: 53 Year
  Sex: Male

DRUGS (1)
  1. DOXYCYCLINE [Suspect]
     Indication: PERIODONTITIS
     Dosage: 20 MG, BID, PER ORAL
     Route: 048
     Dates: start: 20050413, end: 20050424

REACTIONS (1)
  - MONOPLEGIA [None]
